FAERS Safety Report 23653176 (Version 1)
Quarter: 2024Q1

REPORT INFORMATION
  Report Type: Spontaneous
  Country: US (occurrence: US)
  Receive Date: 20240320
  Receipt Date: 20240320
  Transmission Date: 20240409
  Serious: Yes (Other)
  Sender: FDA-Public Use
  Company Number: US-BAYER-2024A040155

PATIENT
  Age: 53 Year
  Sex: Male

DRUGS (3)
  1. CALCIUM CARBONATE [Suspect]
     Active Substance: CALCIUM CARBONATE
  2. OMEPRAZOLE [Concomitant]
     Active Substance: OMEPRAZOLE
  3. RETINOL [Concomitant]
     Active Substance: RETINOL

REACTIONS (1)
  - Hypercalcaemia [None]
